FAERS Safety Report 21541874 (Version 1)
Quarter: 2022Q4

REPORT INFORMATION
  Report Type: Spontaneous
  Country: JP (occurrence: JP)
  Receive Date: 20221102
  Receipt Date: 20221102
  Transmission Date: 20230113
  Serious: Yes (Hospitalization, Other)
  Sender: FDA-Public Use
  Company Number: JP-BAXTER-2022BAX020519

PATIENT
  Age: 85 Year
  Sex: Male

DRUGS (2)
  1. REGUNEAL LCA [Suspect]
     Active Substance: CALCIUM CHLORIDE\DEXTROSE MONOHYDRATE\HYDROCHLORIC ACID\MAGNESIUM CHLORIDE\SODIUM BICARBONATE\SODIUM
     Indication: Chronic kidney disease
     Dosage: UNK
     Route: 033
     Dates: start: 20191001
  2. REGUNEAL LCA [Suspect]
     Active Substance: CALCIUM CHLORIDE\DEXTROSE MONOHYDRATE\HYDROCHLORIC ACID\MAGNESIUM CHLORIDE\SODIUM BICARBONATE\SODIUM
     Indication: Peritoneal dialysis

REACTIONS (3)
  - Peritonitis [Recovered/Resolved]
  - Abdominal pain [Unknown]
  - Peritoneal cloudy effluent [Recovered/Resolved]

NARRATIVE: CASE EVENT DATE: 20220924
